FAERS Safety Report 15363275 (Version 1)
Quarter: 2018Q3

REPORT INFORMATION
  Report Type: Spontaneous
  Country: US (occurrence: US)
  Receive Date: 20180907
  Receipt Date: 20180907
  Transmission Date: 20181010
  Serious: Yes (Other)
  Sender: FDA-Public Use
  Company Number: US-PFIZER INC-2018362026

PATIENT
  Sex: Male

DRUGS (1)
  1. VIAGRA [Suspect]
     Active Substance: SILDENAFIL CITRATE
     Dosage: UNK, (HALF OR ONE ONCE EVERY OTHER TWO DAYS)

REACTIONS (3)
  - Parkinson^s disease [Unknown]
  - Micturition urgency [Unknown]
  - Withdrawal syndrome [Unknown]
